FAERS Safety Report 18011681 (Version 1)
Quarter: 2020Q3

REPORT INFORMATION
  Report Type: Spontaneous
  Country: CA (occurrence: CA)
  Receive Date: 20200713
  Receipt Date: 20200713
  Transmission Date: 20201103
  Serious: Yes (Other)
  Sender: FDA-Public Use
  Company Number: CA-ACCORD-189647

PATIENT
  Sex: Female

DRUGS (5)
  1. METHOTREXATE. [Suspect]
     Active Substance: METHOTREXATE
     Indication: PRODUCT USED FOR UNKNOWN INDICATION
  2. LEFLUNOMIDE. [Concomitant]
     Active Substance: LEFLUNOMIDE
  3. SULFASALAZINE. [Concomitant]
     Active Substance: SULFASALAZINE
  4. HYDROXYCHLOROQUINE [Concomitant]
     Active Substance: HYDROXYCHLOROQUINE
  5. ARAVA [Concomitant]
     Active Substance: LEFLUNOMIDE

REACTIONS (2)
  - Renal impairment [Unknown]
  - Macrocytosis [Unknown]
